FAERS Safety Report 7078959-6 (Version None)
Quarter: 2010Q4

REPORT INFORMATION
  Report Type: 
  Country: None (occurrence: None)
  Receive Date: 20101102
  Receipt Date: 20101019
  Transmission Date: 20110411
  Serious: Yes (Death, Hospitalization)
  Sender: FDA-Public Use
  Company Number: GB-SANOFI-AVENTIS-2010SA066281

PATIENT
  Sex: Male

DRUGS (5)
  1. DOCETAXEL [Suspect]
     Indication: PROSTATE CANCER
     Route: 041
     Dates: start: 20090826, end: 20090826
  2. DOCETAXEL [Suspect]
     Route: 041
     Dates: start: 20090923, end: 20090923
  3. DOCETAXEL [Suspect]
     Route: 041
     Dates: start: 20091014, end: 20091014
  4. DOCETAXEL [Suspect]
     Route: 041
     Dates: start: 20091104, end: 20091104
  5. DOCETAXEL [Suspect]
     Route: 041
     Dates: start: 20091125, end: 20091125

REACTIONS (9)
  - ABDOMINAL PAIN [None]
  - ARTHRALGIA [None]
  - DEATH [None]
  - FLUID INTAKE REDUCED [None]
  - HYDRONEPHROSIS [None]
  - INTESTINAL FUNCTIONAL DISORDER [None]
  - METASTASES TO LIVER [None]
  - NAUSEA [None]
  - VOMITING [None]
